FAERS Safety Report 9995391 (Version 1)
Quarter: 2014Q1

REPORT INFORMATION
  Report Type: Spontaneous
  Country: US (occurrence: None)
  Receive Date: 20140214
  Receipt Date: 20140214
  Transmission Date: 20141002
  Serious: Yes (Other)
  Sender: FDA-Public Use
  Company Number: US-013634

PATIENT
  Age: 57 Year
  Sex: Female
  Weight: 117.94 kg

DRUGS (2)
  1. PREPOPIK [Suspect]
     Indication: BOWEL PREPARATION
     Dosage: 1ST PACKET AT 5PM ON 10NOV2013, 2ND PACKET AT 11PM ON 10NOV13
     Dates: start: 20131110
  2. TOPROL [Concomitant]

REACTIONS (1)
  - Drug ineffective [None]
